FAERS Safety Report 18942834 (Version 1)
Quarter: 2021Q1

REPORT INFORMATION
  Report Type: Spontaneous
  Country: ZA (occurrence: ZA)
  Receive Date: 20210225
  Receipt Date: 20210225
  Transmission Date: 20210420
  Serious: Yes (Other)
  Sender: FDA-Public Use
  Company Number: ZA-SUN PHARMACEUTICAL INDUSTRIES LTD-2021RR-282812

PATIENT
  Age: 19 Year
  Sex: Male

DRUGS (9)
  1. LORAZEPAM. [Suspect]
     Active Substance: LORAZEPAM
     Indication: ANXIETY
     Dosage: 0.5 MILLIGRAM, DAILY
     Route: 065
     Dates: start: 20151013, end: 20151113
  2. LORAZEPAM. [Suspect]
     Active Substance: LORAZEPAM
     Dosage: 0.5 MG PO MANE, 0.5 MG PO MIDDAY, 3 MG PO NOCTE
     Route: 065
     Dates: start: 20151116
  3. FLUOXETINE [Suspect]
     Active Substance: FLUOXETINE HYDROCHLORIDE
     Dosage: 20 MG PO 24 H FOR 3 DAYS, THEN STOP
     Route: 065
     Dates: start: 20151027, end: 20151030
  4. VENLAFAXINE [Suspect]
     Active Substance: VENLAFAXINE HYDROCHLORIDE
     Indication: MAJOR DEPRESSION
     Dosage: 112.5 MG PO 24 H FOR 14 DAYS
     Route: 065
     Dates: start: 20151109, end: 20151111
  5. VENLAFAXINE [Suspect]
     Active Substance: VENLAFAXINE HYDROCHLORIDE
     Dosage: 75 MILLIGRAM, QD
     Route: 065
     Dates: start: 20151111, end: 20151113
  6. FLUOXETINE [Suspect]
     Active Substance: FLUOXETINE HYDROCHLORIDE
     Dosage: 40 MILLIGRAM, DAILY
     Route: 065
     Dates: start: 20151020, end: 20151027
  7. FLUOXETINE [Suspect]
     Active Substance: FLUOXETINE HYDROCHLORIDE
     Indication: MAJOR DEPRESSION
     Dosage: 20 MILLIGRAM, DAILY
     Route: 065
     Dates: start: 20150929, end: 20151020
  8. LORAZEPAM. [Suspect]
     Active Substance: LORAZEPAM
     Dosage: 0.5 MG PO MANE, 0.5 MG PO MIDDAY, 2 MG PO NOCTE
     Route: 065
     Dates: start: 20151113, end: 20151116
  9. VENLAFAXINE [Suspect]
     Active Substance: VENLAFAXINE HYDROCHLORIDE
     Dosage: 37.5 MG PO FOR 7 DAYS, THEN INCREASE TO 75 MG PO FOR 7 DAYS
     Route: 065
     Dates: end: 20151109

REACTIONS (4)
  - Mania [Unknown]
  - Drug ineffective [Unknown]
  - Condition aggravated [Unknown]
  - Psychotic disorder [Unknown]
